FAERS Safety Report 5475035-0 (Version None)
Quarter: 2007Q4

REPORT INFORMATION
  Report Type: 
  Country: None (occurrence: None)
  Receive Date: 20071002
  Receipt Date: 20070729
  Transmission Date: 20080405
  Serious: No
  Sender: FDA-Public Use
  Company Number: US-ASTRAZENECA-2007UW18260

PATIENT
  Age: 59 Year
  Sex: Female
  Weight: 104.3 kg

DRUGS (7)
  1. ARIMIDEX [Suspect]
     Indication: MALIGNANT BREAST LUMP REMOVAL
     Route: 048
     Dates: start: 20041101, end: 20051201
  2. ARIMIDEX [Suspect]
     Route: 048
     Dates: start: 20060101, end: 20070101
  3. ARIMIDEX [Suspect]
     Route: 048
     Dates: start: 20070719
  4. LIPITOR [Concomitant]
  5. VITAMINS [Concomitant]
  6. MONOPRES [Concomitant]
  7. SPIRONOLACTONE [Concomitant]

REACTIONS (4)
  - ARTHRALGIA [None]
  - CANDIDIASIS [None]
  - DYSGEUSIA [None]
  - MYALGIA [None]
